FAERS Safety Report 23766990 (Version 1)
Quarter: 2024Q2

REPORT INFORMATION
  Report Type: Spontaneous
  Country: US (occurrence: None)
  Receive Date: 20240419
  Receipt Date: 20240419
  Transmission Date: 20240716
  Serious: Yes (Life-Threatening, Hospitalization)
  Sender: FDA-Public Use
  Company Number: None

PATIENT
  Age: 32 Year
  Sex: Female

DRUGS (1)
  1. XEOMIN [Suspect]
     Active Substance: INCOBOTULINUMTOXINA
     Dosage: OTHER QUANTITY : 45 UNITS;?OTHER ROUTE : INJECTIONS;?
     Route: 050
     Dates: start: 20240305, end: 20240305

REACTIONS (20)
  - Dizziness [None]
  - Headache [None]
  - Dysphagia [None]
  - Sleep apnoea syndrome [None]
  - Dyspnoea [None]
  - Insomnia [None]
  - Muscular weakness [None]
  - Diarrhoea [None]
  - Weight decreased [None]
  - Vision blurred [None]
  - Chest pain [None]
  - Nausea [None]
  - Panic attack [None]
  - Confusional state [None]
  - Dysarthria [None]
  - Tremor [None]
  - Eyelid ptosis [None]
  - Amnesia [None]
  - Depression [None]
  - Hypoaesthesia [None]

NARRATIVE: CASE EVENT DATE: 20240305
